FAERS Safety Report 8890692 (Version 4)
Quarter: 2013Q2

REPORT INFORMATION
  Report Type: Spontaneous
  Country: US (occurrence: US)
  Receive Date: 20121106
  Receipt Date: 20130606
  Transmission Date: 20140414
  Serious: Yes (Death, Hospitalization)
  Sender: FDA-Public Use
  Company Number: US-GILEAD-2012-0064069

PATIENT
  Age: 65 Year
  Sex: Male

DRUGS (3)
  1. LETAIRIS [Suspect]
     Indication: COR PULMONALE CHRONIC
     Dosage: 5 MG, QD
     Route: 048
     Dates: start: 20120505
  2. EPOPROSTENOL [Concomitant]
  3. VIAGRA [Concomitant]

REACTIONS (6)
  - Gastrointestinal haemorrhage [Fatal]
  - Scleroderma [Fatal]
  - Haemorrhage [Unknown]
  - Haemorrhage [Unknown]
  - Condition aggravated [Unknown]
  - Vomiting [Unknown]
